FAERS Safety Report 20167723 (Version 1)
Quarter: 2021Q4

REPORT INFORMATION
  Report Type: Spontaneous
  Country: DE (occurrence: DE)
  Receive Date: 20211210
  Receipt Date: 20211210
  Transmission Date: 20220303
  Serious: Yes (Other)
  Sender: FDA-Public Use
  Company Number: DE-ABBVIE-21K-062-4189703-00

PATIENT
  Sex: Female

DRUGS (2)
  1. HUMIRA [Suspect]
     Active Substance: ADALIMUMAB
     Indication: Crohn^s disease
     Route: 058
     Dates: end: 201910
  2. IBUPROFEN [Concomitant]
     Active Substance: IBUPROFEN
     Indication: Product used for unknown indication

REACTIONS (7)
  - Blood albumin decreased [Unknown]
  - Crohn^s disease [Not Recovered/Not Resolved]
  - Inflammatory marker increased [Unknown]
  - Intestinal fistula [Unknown]
  - Investigation abnormal [Not Recovered/Not Resolved]
  - Depression [Unknown]
  - Inflammation [Unknown]
